FAERS Safety Report 9109507 (Version 4)
Quarter: 2013Q2

REPORT INFORMATION
  Report Type: Report from Study
  Country: IT (occurrence: IT)
  Receive Date: 20130222
  Receipt Date: 20130415
  Transmission Date: 20140414
  Serious: Yes (Other)
  Sender: FDA-Public Use
  Company Number: PHHO2013IT002580

PATIENT
  Sex: 0

DRUGS (3)
  1. ICL670A [Suspect]
     Indication: IRON OVERLOAD
     Dosage: UNK
     Dates: start: 20130117
  2. RIBAVIRIN [Suspect]
     Indication: CHRONIC HEPATITIS
     Dosage: 800 MG, QD
     Route: 048
     Dates: start: 20130117, end: 20130402
  3. PEGASYS [Suspect]
     Indication: CHRONIC HEPATITIS
     Dosage: 180 UG, QD
     Dates: start: 20130117

REACTIONS (2)
  - Upper respiratory tract infection [Unknown]
  - Cough [Recovered/Resolved with Sequelae]
